FAERS Safety Report 18927618 (Version 1)
Quarter: 2021Q1

REPORT INFORMATION
  Report Type: Spontaneous
  Country: US (occurrence: US)
  Receive Date: 20210222
  Receipt Date: 20210222
  Transmission Date: 20210420
  Serious: Yes (Hospitalization)
  Sender: FDA-Public Use
  Company Number: None

PATIENT
  Sex: Female

DRUGS (2)
  1. DOFETILIDE 125MCG CAP [Suspect]
     Active Substance: DOFETILIDE
     Indication: ATRIAL FIBRILLATION
     Dosage: ?          OTHER DOSE:3 CAPS ;?
     Route: 048
     Dates: start: 20180114
  2. PROLIA [Suspect]
     Active Substance: DENOSUMAB
     Indication: OSTEOPOROSIS
     Dosage: ?          OTHER DOSE:1 SYRINGE ;OTHER FREQUENCY:EVERY 6 MONTHS ;?
     Route: 058
     Dates: start: 20180612

REACTIONS (1)
  - Cardiac failure congestive [None]
